FAERS Safety Report 8870040 (Version 1)
Quarter: 2012Q4

REPORT INFORMATION
  Report Type: 
  Country: US (occurrence: US)
  Receive Date: 20121026
  Receipt Date: 20121026
  Transmission Date: 20130627
  Serious: No
  Sender: FDA-Public Use
  Company Number: US-AMGEN-USASP2012044010

PATIENT
  Age: 54 Year
  Sex: Female
  Weight: 102.4 kg

DRUGS (8)
  1. ENBREL [Suspect]
     Indication: PRODUCT USED FOR UNKNOWN INDICATION
     Dosage: 50 mg, qwk
     Route: 058
  2. SKELAXIN                           /00611501/ [Concomitant]
     Dosage: 800 mg, UNK
  3. VICODIN [Concomitant]
     Dosage: 5 mg, UNK
  4. PREVACID [Concomitant]
     Dosage: 15 mg, UNK
  5. LASIX                              /00032601/ [Concomitant]
     Dosage: 20 mg, UNK
  6. CORGARD [Concomitant]
     Dosage: 20 mg, UNK
  7. EVISTA [Concomitant]
     Dosage: 60 mg, UNK
  8. VESICARE [Concomitant]
     Dosage: 5 mg, UNK

REACTIONS (2)
  - Muscle spasms [Unknown]
  - Drug ineffective [Unknown]
